FAERS Safety Report 8354045-X (Version None)
Quarter: 2012Q2

REPORT INFORMATION
  Report Type: 
  Country: None (occurrence: None)
  Receive Date: 20120511
  Receipt Date: 20110103
  Transmission Date: 20120825
  Serious: No
  Sender: FDA-Public Use
  Company Number: US-TEVA-2011000060

PATIENT
  Sex: Female
  Weight: 97.156 kg

DRUGS (4)
  1. SYNTHROID [Concomitant]
     Dates: start: 19910101
  2. NUVIGIL [Suspect]
     Indication: NARCOLEPSY
     Dosage: 250 MILLIGRAM;
     Route: 048
     Dates: start: 20101227
  3. NUVIGIL [Suspect]
     Dosage: 125 MILLIGRAM;
     Route: 048
     Dates: start: 20101231
  4. ACTONEL [Concomitant]
     Dates: start: 20090101

REACTIONS (6)
  - PSYCHOMOTOR HYPERACTIVITY [None]
  - DECREASED APPETITE [None]
  - HEADACHE [None]
  - INSOMNIA [None]
  - LOGORRHOEA [None]
  - NAUSEA [None]
